FAERS Safety Report 7368986-3 (Version None)
Quarter: 2011Q1

REPORT INFORMATION
  Report Type: 
  Country: None (occurrence: None)
  Receive Date: 20110321
  Receipt Date: 20110321
  Transmission Date: 20110831
  Serious: Yes (Life-Threatening, Hospitalization, Disabling, Other)
  Sender: FDA-Public Use
  Company Number: None

PATIENT
  Age: 49 Year
  Weight: 76.2043 kg

DRUGS (2)
  1. PACLITAXEL [Suspect]
     Indication: STENT PLACEMENT
     Dosage: INTRACORONARY
     Route: 022
     Dates: start: 20010316, end: 20010320
  2. PACLITAXEL [Suspect]

REACTIONS (3)
  - CHEST PAIN [None]
  - CONFUSIONAL STATE [None]
  - DYSPEPSIA [None]
